FAERS Safety Report 8530828-8 (Version None)
Quarter: 2012Q3

REPORT INFORMATION
  Report Type: 
  Country: None (occurrence: None)
  Receive Date: 20120723
  Receipt Date: 20120713
  Transmission Date: 20120928
  Serious: Yes (Hospitalization)
  Sender: FDA-Public Use
  Company Number: BR-PFIZER INC-2012175012

PATIENT
  Age: 83 Year
  Sex: Male
  Weight: 83 kg

DRUGS (7)
  1. ASPIRIN [Concomitant]
     Dosage: UNK
  2. PANTOPRAZOLE [Suspect]
     Indication: PROPHYLAXIS
     Dosage: 40 MG, UNK
     Route: 042
     Dates: start: 20120425
  3. CAPTOPRIL [Concomitant]
     Dosage: UNK
     Route: 042
  4. FINASTERIDE [Concomitant]
     Dosage: UNK
  5. SIMVASTATIN [Concomitant]
     Dosage: UNK
  6. ATENOLOL [Concomitant]
     Dosage: UNK
  7. TAMSULOSIN [Concomitant]
     Dosage: UNK

REACTIONS (1)
  - PHLEBITIS [None]
